FAERS Safety Report 20513062 (Version 1)
Quarter: 2022Q1

REPORT INFORMATION
  Report Type: Spontaneous
  Country: US (occurrence: None)
  Receive Date: 20220224
  Receipt Date: 20220224
  Transmission Date: 20220423
  Serious: Yes (Other)
  Sender: FDA-Public Use
  Company Number: None

PATIENT
  Age: 61 Year
  Sex: Female
  Weight: 68.04 kg

DRUGS (6)
  1. SURE ANTIPERSPIRANT DEODORANT REGULAR [Suspect]
     Active Substance: ALUMINUM CHLOROHYDRATE
     Indication: Personal hygiene
     Dosage: FREQUENCY : DAILY;?
     Route: 061
     Dates: start: 20210730, end: 20220201
  2. VALIUM [Concomitant]
     Active Substance: DIAZEPAM
  3. LIPITOR [Concomitant]
     Active Substance: ATORVASTATIN CALCIUM
  4. GABAPENTIN [Concomitant]
     Active Substance: GABAPENTIN
  5. ZINC [Concomitant]
     Active Substance: ZINC
  6. PROBIOTICS NOS [Concomitant]
     Active Substance: PROBIOTICS NOS

REACTIONS (2)
  - Application site reaction [None]
  - Hyperhidrosis [None]

NARRATIVE: CASE EVENT DATE: 20210730
